FAERS Safety Report 6228316-7 (Version None)
Quarter: 2009Q2

REPORT INFORMATION
  Report Type: 
  Country: None (occurrence: None)
  Receive Date: 20090612
  Receipt Date: 20090602
  Transmission Date: 20091009
  Serious: Yes (Other)
  Sender: FDA-Public Use
  Company Number: US-AVENTIS-200913117US

PATIENT
  Sex: Male
  Weight: 92.99 kg

DRUGS (14)
  1. LANTUS [Suspect]
     Indication: TYPE 2 DIABETES MELLITUS
     Route: 058
  2. LANTUS [Suspect]
     Dosage: DOSE: 20 -24
     Route: 058
     Dates: start: 20050101
  3. OPTICLIK (INSULIN INJECTION PEN) [Suspect]
     Indication: TYPE 2 DIABETES MELLITUS
  4. NOVOLOG [Concomitant]
     Dosage: DOSE: 2-4 UNITS BEFORE MEALS
  5. LASIX [Concomitant]
  6. GABAPENTIN [Concomitant]
  7. PROTONIX [Concomitant]
  8. BRIMONDINE TARTRATE OPTHALMIC SOLUTION 0.2% [Concomitant]
     Dosage: DOSE: 1 DROP IN RIGHT EYE
  9. PROSCAR [Concomitant]
  10. ZOCOR [Concomitant]
  11. NITROGLYCERIN [Concomitant]
     Dosage: DOSE: 0.4 MG- 1/150 GR
  12. VITAMIN B-12 SHOTS [Concomitant]
     Dosage: DOSE: UNK
  13. MULTI-VITAMINS [Concomitant]
     Dosage: DOSE: UNK
  14. SEA OMEGA [Concomitant]
     Dosage: DOSE: 2 CAPSULES

REACTIONS (1)
  - VITREOUS DISORDER [None]
